FAERS Safety Report 6168197-3 (Version None)
Quarter: 2009Q2

REPORT INFORMATION
  Report Type: 
  Country: None (occurrence: None)
  Receive Date: 20090427
  Receipt Date: 20090417
  Transmission Date: 20091009
  Serious: Yes (Hospitalization, Other)
  Sender: FDA-Public Use
  Company Number: PHHY2009BR14620

PATIENT
  Age: 9 Year
  Sex: Male

DRUGS (2)
  1. SANDIMMUNE [Suspect]
     Indication: RENAL TRANSPLANT
  2. SULTAN TOPEX [Suspect]

REACTIONS (16)
  - ABDOMINAL DISTENSION [None]
  - CRYPTORCHISM [None]
  - FATIGUE [None]
  - GINGIVAL BLEEDING [None]
  - GINGIVAL HYPERPLASIA [None]
  - GINGIVAL PAIN [None]
  - GINGIVECTOMY [None]
  - GINGIVITIS [None]
  - HYPERTELORISM OF ORBIT [None]
  - HYPERTENSION [None]
  - HYPERTRICHOSIS [None]
  - IRRITABILITY [None]
  - MASTICATION DISORDER [None]
  - ORCHIDOPEXY [None]
  - POLYDACTYLY [None]
  - TOOTH HYPOPLASIA [None]
